FAERS Safety Report 11357245 (Version 1)
Quarter: 2015Q3

REPORT INFORMATION
  Report Type: Spontaneous
  Country: US (occurrence: US)
  Receive Date: 20150803
  Receipt Date: 20150803
  Transmission Date: 20151125
  Serious: No
  Sender: FDA-Public Use
  Company Number: US-ELI_LILLY_AND_COMPANY-US201208006356

PATIENT
  Age: 7 Year
  Sex: Female
  Weight: 29 kg

DRUGS (2)
  1. FLUOXETINE [Concomitant]
     Active Substance: FLUOXETINE\FLUOXETINE HYDROCHLORIDE
     Dosage: 20 MG, QD
  2. STRATTERA [Suspect]
     Active Substance: ATOMOXETINE HYDROCHLORIDE
     Indication: ATTENTION DEFICIT/HYPERACTIVITY DISORDER
     Dosage: 40 MG, QD
     Dates: start: 201208

REACTIONS (4)
  - Mydriasis [Recovered/Resolved]
  - Insomnia [Recovered/Resolved]
  - Overdose [Unknown]
  - Affective disorder [Recovered/Resolved]

NARRATIVE: CASE EVENT DATE: 201208
